FAERS Safety Report 24030977 (Version 5)
Quarter: 2024Q4

REPORT INFORMATION
  Report Type: Spontaneous
  Country: US (occurrence: US)
  Receive Date: 20240628
  Receipt Date: 20241011
  Transmission Date: 20250115
  Serious: No
  Sender: PFIZER
  Company Number: US-PFIZER INC-202400199991

PATIENT
  Age: 37 Year
  Sex: Female
  Weight: 86.18 kg

DRUGS (1)
  1. GENOTROPIN [Suspect]
     Active Substance: SOMATROPIN
     Dosage: UNK

REACTIONS (4)
  - Device use error [Unknown]
  - Product deposit [Unknown]
  - Product reconstitution quality issue [Unknown]
  - Device leakage [Unknown]
